FAERS Safety Report 5024778-1 (Version None)
Quarter: 2006Q2

REPORT INFORMATION
  Report Type: 
  Country: None (occurrence: None)
  Receive Date: 20060426
  Receipt Date: 20060213
  Transmission Date: 20061013
  Serious: Yes (Other)
  Sender: FDA-Public Use
  Company Number: 2006022764

PATIENT
  Age: 58 Year
  Sex: Male
  Weight: 88.905 kg

DRUGS (3)
  1. LYRICA [Suspect]
     Indication: PAIN
     Dosage: 75 MG (75 MG, 1 D)
     Dates: start: 20060210
  2. OXYCONTIN [Concomitant]
  3. ZOCOR [Concomitant]

REACTIONS (4)
  - ACTIVITIES OF DAILY LIVING IMPAIRED [None]
  - FEELING ABNORMAL [None]
  - HUNGER [None]
  - LETHARGY [None]
